FAERS Safety Report 6826445-8 (Version None)
Quarter: 2010Q3

REPORT INFORMATION
  Report Type: 
  Country: None (occurrence: None)
  Receive Date: 20100709
  Receipt Date: 20100629
  Transmission Date: 20110219
  Serious: Yes (Hospitalization)
  Sender: FDA-Public Use
  Company Number: JP-JNJFOC-20100701262

PATIENT
  Age: 43 Year
  Sex: Male

DRUGS (8)
  1. TOPIRAMATE [Suspect]
     Indication: PRODUCT USED FOR UNKNOWN INDICATION
     Route: 048
  2. EXCEGRAN [Concomitant]
     Route: 048
  3. FLAGYL [Concomitant]
     Route: 065
  4. MEROPENEM [Concomitant]
     Route: 050
  5. VANCOMYCIN [Concomitant]
     Route: 050
  6. GLYCEOL [Concomitant]
     Route: 050
  7. ROCEPHIN [Concomitant]
     Route: 050
  8. DALACIN S [Concomitant]
     Route: 050

REACTIONS (2)
  - CALCULUS URINARY [None]
  - NEUTROPENIA [None]
